FAERS Safety Report 5109877-8 (Version None)
Quarter: 2006Q3

REPORT INFORMATION
  Report Type: 
  Country: None (occurrence: None)
  Receive Date: 20060919
  Receipt Date: 20060919
  Transmission Date: 20061208
  Serious: Yes (Life-Threatening, Hospitalization)
  Sender: FDA-Public Use
  Company Number: None

PATIENT
  Age: 6 Year
  Sex: Female
  Weight: 20 kg

DRUGS (3)
  1. VESANOID [Suspect]
     Indication: ACUTE PROMYELOCYTIC LEUKAEMIA
     Dosage: 10 MG BID ORAL
     Route: 048
  2. FLUCONAZOLE [Concomitant]
  3. BACTRIM [Concomitant]

REACTIONS (8)
  - BENIGN INTRACRANIAL HYPERTENSION [None]
  - CIRCULATORY COLLAPSE [None]
  - DYSPNOEA [None]
  - HYPERTENSION [None]
  - HYPOXIA [None]
  - MENTAL STATUS CHANGES [None]
  - TACHYCARDIA [None]
  - URINE OUTPUT DECREASED [None]
